FAERS Safety Report 25683902 (Version 2)
Quarter: 2025Q3

REPORT INFORMATION
  Report Type: Spontaneous
  Country: US (occurrence: US)
  Receive Date: 20250815
  Receipt Date: 20250906
  Transmission Date: 20251020
  Serious: Yes (Life-Threatening, Hospitalization, Other)
  Sender: JOHNSON AND JOHNSON
  Company Number: US-JNJFOC-20250812174

PATIENT
  Age: 32 Year
  Sex: Male

DRUGS (11)
  1. HALDOL DECANOATE [Suspect]
     Active Substance: HALOPERIDOL DECANOATE
     Indication: Psychotic disorder
     Dates: end: 20250728
  2. HALDOL DECANOATE [Suspect]
     Active Substance: HALOPERIDOL DECANOATE
     Indication: Agitation
  3. INGREZZA [Suspect]
     Active Substance: VALBENAZINE DITOSYLATE
     Indication: Tardive dyskinesia
     Dosage: 40 MG OF INGREZZA AROUND 5 PM AND ANOTHER 40?MG OF INGREZZA AT 8 PM
     Dates: start: 20250724, end: 20250804
  4. INGREZZA [Suspect]
     Active Substance: VALBENAZINE DITOSYLATE
  5. OXCARBAZEPINE [Concomitant]
     Active Substance: OXCARBAZEPINE
     Indication: Product used for unknown indication
  6. OMEPRAZOLE [Concomitant]
     Active Substance: OMEPRAZOLE
     Indication: Product used for unknown indication
  7. SODIUM CHLORIDE [Concomitant]
     Active Substance: SODIUM CHLORIDE
     Indication: Product used for unknown indication
  8. VITAMIN D [Concomitant]
     Active Substance: VITAMIN D NOS
     Indication: Product used for unknown indication
  9. BENADRYL ALLERGY [Concomitant]
     Active Substance: DIPHENHYDRAMINE HYDROCHLORIDE
     Indication: Product used for unknown indication
  10. TAMSULOSIN HYDROCHLORIDE [Concomitant]
     Active Substance: TAMSULOSIN HYDROCHLORIDE
     Indication: Product used for unknown indication
  11. ADVIL [Concomitant]
     Active Substance: IBUPROFEN
     Indication: Product used for unknown indication

REACTIONS (19)
  - Incorrect dose administered [Unknown]
  - General physical health deterioration [Unknown]
  - Mental impairment [Unknown]
  - Psychiatric symptom [Unknown]
  - Tremor [Not Recovered/Not Resolved]
  - Insomnia [Recovering/Resolving]
  - Aggression [Unknown]
  - Fear [Unknown]
  - Irritability [Unknown]
  - Extra dose administered [Unknown]
  - Dyskinesia [Not Recovered/Not Resolved]
  - Dysphagia [Not Recovered/Not Resolved]
  - Tic [Unknown]
  - Speech disorder [Unknown]
  - Blood sodium decreased [Recovering/Resolving]
  - Somnolence [Unknown]
  - Drug effect less than expected [Unknown]
  - Blunted affect [Unknown]
  - Fatigue [Unknown]

NARRATIVE: CASE EVENT DATE: 20250724
